FAERS Safety Report 7905662-X (Version None)
Quarter: 2011Q4

REPORT INFORMATION
  Report Type: 
  Country: None (occurrence: None)
  Receive Date: 20111110
  Receipt Date: 20111104
  Transmission Date: 20120403
  Serious: No
  Sender: FDA-Public Use
  Company Number: US-BIOGENIDEC-2011BI042419

PATIENT
  Age: 63 Year
  Sex: Female

DRUGS (4)
  1. TYSABRI [Suspect]
     Indication: MULTIPLE SCLEROSIS
     Route: 042
     Dates: start: 20111026
  2. TYSABRI [Suspect]
     Route: 042
     Dates: start: 20070328, end: 20070524
  3. TYSABRI [Suspect]
     Route: 042
     Dates: start: 20071001, end: 20071029
  4. AVONEX [Concomitant]
     Indication: MULTIPLE SCLEROSIS
     Route: 030
     Dates: start: 20031010

REACTIONS (2)
  - BALANCE DISORDER [None]
  - FALL [None]
